FAERS Safety Report 4655454-2 (Version None)
Quarter: 2005Q2

REPORT INFORMATION
  Report Type: 
  Country: None (occurrence: None)
  Receive Date: 20050505
  Receipt Date: 20050422
  Transmission Date: 20051028
  Serious: Yes (Hospitalization, Other)
  Sender: FDA-Public Use
  Company Number: 2005065542

PATIENT
  Age: 86 Year
  Sex: Female
  Weight: 76.6579 kg

DRUGS (2)
  1. NORVASC [Suspect]
     Indication: HYPERTENSION
     Dosage: 25 MG (25 MG, 1 IN 24 HR), ORAL
     Route: 048
  2. ATENOLOL [Concomitant]

REACTIONS (16)
  - ANXIETY [None]
  - ASTHENIA [None]
  - ATRIAL FIBRILLATION [None]
  - CARDIAC FAILURE CONGESTIVE [None]
  - CONSTIPATION [None]
  - DYSPNOEA [None]
  - EYE PAIN [None]
  - FATIGUE [None]
  - HYPERHIDROSIS [None]
  - INSOMNIA [None]
  - MACULAR DEGENERATION [None]
  - NAUSEA [None]
  - OEDEMA [None]
  - RASH [None]
  - URINARY INCONTINENCE [None]
  - VISUAL DISTURBANCE [None]
